FAERS Safety Report 7082455-X (Version None)
Quarter: 2010Q3

REPORT INFORMATION
  Report Type: 
  Country: None (occurrence: None)
  Receive Date: 20100929
  Receipt Date: 20100720
  Transmission Date: 20110219
  Serious: No
  Sender: FDA-Public Use
  Company Number: US-WYE-H16389610

PATIENT
  Age: 55 Year
  Sex: Female
  Weight: 136.2 kg

DRUGS (6)
  1. PRISTIQ [Suspect]
     Indication: DEPRESSION
     Dosage: 50 MG 1X PER 1 DAY, ORAL; 50 MG 1X PER 3 DAY, ORAL; 50 MG 1X PER 2 DAY, ORAL
     Route: 048
     Dates: start: 20090101, end: 20100630
  2. PRISTIQ [Suspect]
     Indication: DEPRESSION
     Dosage: 50 MG 1X PER 1 DAY, ORAL; 50 MG 1X PER 3 DAY, ORAL; 50 MG 1X PER 2 DAY, ORAL
     Route: 048
     Dates: start: 20100701, end: 20100714
  3. PRISTIQ [Suspect]
     Indication: DEPRESSION
     Dosage: 50 MG 1X PER 1 DAY, ORAL; 50 MG 1X PER 3 DAY, ORAL; 50 MG 1X PER 2 DAY, ORAL
     Route: 048
     Dates: start: 20100715
  4. LIPITOR [Concomitant]
  5. MULTIVITAMIN AND MINERAL SUPPLEMENT (MINERALS NOS/VITAMINS NOS) [Concomitant]
  6. ASPIRIN [Concomitant]

REACTIONS (13)
  - ACTIVITIES OF DAILY LIVING IMPAIRED [None]
  - CONDITION AGGRAVATED [None]
  - CONSTIPATION [None]
  - DISTURBANCE IN ATTENTION [None]
  - DIZZINESS [None]
  - DRUG WITHDRAWAL SYNDROME [None]
  - HYPERHIDROSIS [None]
  - INSOMNIA [None]
  - LOGORRHOEA [None]
  - PANIC DISORDER [None]
  - SYNCOPE [None]
  - WEIGHT INCREASED [None]
  - YAWNING [None]
